FAERS Safety Report 10144068 (Version 2)
Quarter: 2014Q2

REPORT INFORMATION
  Report Type: Spontaneous
  Country: US (occurrence: US)
  Receive Date: 20140430
  Receipt Date: 20140609
  Transmission Date: 20141212
  Serious: Yes (Hospitalization, Other)
  Sender: FDA-Public Use
  Company Number: US-PFIZER INC-2014119491

PATIENT
  Age: 53 Year
  Sex: Female

DRUGS (3)
  1. XELJANZ [Suspect]
     Indication: RHEUMATOID ARTHRITIS
     Dosage: 5 MG, 2X/DAY
     Route: 048
     Dates: start: 201305, end: 20140206
  2. PREDNISONE [Concomitant]
     Indication: RHEUMATOID ARTHRITIS
     Dosage: 5 MG, UNK
     Dates: end: 20140206
  3. PERCOCET [Concomitant]
     Dosage: UNK

REACTIONS (9)
  - Colitis ischaemic [Recovered/Resolved]
  - Rectal haemorrhage [Recovered/Resolved]
  - Ileus [Recovered/Resolved]
  - Dyspnoea [Unknown]
  - Renal cyst [Unknown]
  - Hiatus hernia [Unknown]
  - Atelectasis [Unknown]
  - Blood glucose increased [Recovered/Resolved]
  - Aspartate aminotransferase decreased [Unknown]
